FAERS Safety Report 4838759-1 (Version None)
Quarter: 2005Q4

REPORT INFORMATION
  Report Type: 
  Country: None (occurrence: None)
  Receive Date: 20051129
  Receipt Date: 20050926
  Transmission Date: 20060501
  Serious: No
  Sender: FDA-Public Use
  Company Number: US-GLAXOSMITHKLINE-A0575867A

PATIENT
  Age: 37 Year
  Sex: Female

DRUGS (2)
  1. COMMIT [Suspect]
     Dates: start: 20050925, end: 20050925
  2. NICODERM CQ [Suspect]

REACTIONS (5)
  - FEELING ABNORMAL [None]
  - HEART RATE DECREASED [None]
  - RASH [None]
  - RASH MACULAR [None]
  - TOOTHACHE [None]
